FAERS Safety Report 24673500 (Version 1)
Quarter: 2024Q4

REPORT INFORMATION
  Report Type: Spontaneous
  Country: AU (occurrence: AU)
  Receive Date: 20241128
  Receipt Date: 20241128
  Transmission Date: 20250114
  Serious: Yes (Other)
  Sender: CSL BEHRING
  Company Number: AU-BEH-2024186223

PATIENT
  Sex: Female
  Weight: 45 kg

DRUGS (1)
  1. ALBUREX [Suspect]
     Active Substance: ALBUMIN HUMAN
     Indication: Hypotension
     Dosage: 500 ML, 2 HOURS
     Route: 042
     Dates: start: 20241119, end: 20241119

REACTIONS (5)
  - Heart rate increased [Recovering/Resolving]
  - Pyelonephritis [Unknown]
  - Chills [Recovering/Resolving]
  - Pyrexia [Recovering/Resolving]
  - Transfusion reaction [Unknown]

NARRATIVE: CASE EVENT DATE: 20241119
